FAERS Safety Report 9845203 (Version 1)
Quarter: 2014Q1

REPORT INFORMATION
  Report Type: Report from Study
  Country: US (occurrence: US)
  Receive Date: 20140127
  Receipt Date: 20140127
  Transmission Date: 20141002
  Serious: No
  Sender: FDA-Public Use
  Company Number: US-ALEXION-A201400112

PATIENT
  Sex: 0

DRUGS (5)
  1. SOLIRIS [Suspect]
     Indication: PAROXYSMAL NOCTURNAL HAEMOGLOBINURIA
     Dosage: 900 MG, Q2W
     Route: 042
     Dates: start: 20090218
  2. FOLIC ACID [Concomitant]
     Dosage: 1 G, QD
  3. MULTIVITAMIN [Concomitant]
     Dosage: 1 UNK, QD
  4. PREDNISONE [Concomitant]
     Dosage: 60 MG, QD
  5. VITAMIN B12 [Concomitant]
     Dosage: 800 MG, UNK

REACTIONS (4)
  - Dysphagia [Unknown]
  - Depression [Not Recovered/Not Resolved]
  - Anxiety [Unknown]
  - Fatigue [Unknown]
